FAERS Safety Report 10868289 (Version 1)
Quarter: 2015Q1

REPORT INFORMATION
  Report Type: Spontaneous
  Country: JP (occurrence: JP)
  Receive Date: 20150225
  Receipt Date: 20150225
  Transmission Date: 20150721
  Serious: Yes (Other)
  Sender: FDA-Public Use
  Company Number: JP-SA-2015SA020860

PATIENT
  Sex: Male

DRUGS (3)
  1. ITANGO PEN [Concomitant]
     Active Substance: INSULIN NOS
  2. APIDRA [Suspect]
     Active Substance: INSULIN GLULISINE
     Route: 058
  3. LANTUS [Suspect]
     Active Substance: INSULIN GLARGINE
     Route: 058

REACTIONS (5)
  - Nail disorder [Unknown]
  - Angina pectoris [Unknown]
  - Asthenia [Unknown]
  - Urine output decreased [Unknown]
  - Headache [Unknown]
